FAERS Safety Report 4595161-8 (Version None)
Quarter: 2005Q1

REPORT INFORMATION
  Report Type: 
  Country: None (occurrence: None)
  Receive Date: 20050224
  Receipt Date: 20040917
  Transmission Date: 20050727
  Serious: Yes (Hospitalization, Other)
  Sender: FDA-Public Use
  Company Number: 2004S1002812

PATIENT
  Age: 24 Year
  Sex: Female
  Weight: 68.0396 kg

DRUGS (8)
  1. EXTENDED PHENYTOIN SODIUM [Suspect]
     Indication: COMPLEX PARTIAL SEIZURES
     Dosage: 300MG QHS, ORAL
     Route: 048
     Dates: start: 20040428, end: 20040914
  2. EXTENDED PHENYTOIN SODIUM [Suspect]
     Indication: EPILEPSY
     Dosage: 300MG QHS, ORAL
     Route: 048
     Dates: start: 20040428, end: 20040914
  3. LAMOTRIGINE (325MG BID) [Concomitant]
  4. CALCIUM GLUCONATE [Concomitant]
  5. VITAMIN D  WITH MINERALS [Concomitant]
  6. VITAMINS [Concomitant]
  7. MULTIVITAMIN WITH IRON [Concomitant]
  8. ETHINYL ESTRADIOL/NORETHINDRONE (QD) [Concomitant]

REACTIONS (3)
  - CONVULSION [None]
  - DRUG INEFFECTIVE [None]
  - DRUG LEVEL BELOW THERAPEUTIC [None]
